FAERS Safety Report 8396368-4 (Version None)
Quarter: 2012Q2

REPORT INFORMATION
  Report Type: 
  Country: None (occurrence: None)
  Receive Date: 20120530
  Receipt Date: 20120522
  Transmission Date: 20120825
  Serious: Yes (Hospitalization, Other)
  Sender: FDA-Public Use
  Company Number: US-MERCK-1205USA04335

PATIENT
  Sex: Female

DRUGS (5)
  1. ALENDRONATE SODIUM [Suspect]
     Route: 048
     Dates: start: 20091001, end: 20100101
  2. FOSAMAX PLUS D [Suspect]
     Route: 048
     Dates: start: 20080301
  3. FOSAMAX [Suspect]
     Route: 048
     Dates: start: 20020101, end: 20080301
  4. ALENDRONATE SODIUM [Suspect]
     Route: 048
     Dates: start: 20100101, end: 20100501
  5. FOSAMAX [Suspect]
     Route: 048
     Dates: start: 20090101, end: 20091001

REACTIONS (1)
  - FEMUR FRACTURE [None]
